FAERS Safety Report 9286322 (Version 2)
Quarter: 2013Q2

REPORT INFORMATION
  Report Type: Spontaneous
  Country: US (occurrence: US)
  Receive Date: 20130513
  Receipt Date: 20130612
  Transmission Date: 20140414
  Serious: Yes (Hospitalization, Other)
  Sender: FDA-Public Use
  Company Number: US-PFIZER INC-2013146837

PATIENT
  Age: 57 Year
  Sex: Female
  Weight: 52 kg

DRUGS (3)
  1. EFFEXOR XR [Suspect]
     Indication: DEPRESSION
     Dosage: 75 MG, DAILY
  2. EFFEXOR XR [Suspect]
     Dosage: 150 MG, DAILY
     Dates: end: 201305
  3. PREDNISONE [Concomitant]
     Indication: PAIN
     Dosage: 20 MG, DAILY

REACTIONS (2)
  - Intervertebral disc protrusion [Unknown]
  - Impaired driving ability [Unknown]
